FAERS Safety Report 11320969 (Version 1)
Quarter: 2015Q3

REPORT INFORMATION
  Report Type: Spontaneous
  Country: US (occurrence: None)
  Receive Date: 20150728
  Receipt Date: 20150728
  Transmission Date: 20151125
  Serious: Yes (Life-Threatening, Hospitalization)
  Sender: FDA-Public Use
  Company Number: None

PATIENT
  Age: 74 Year
  Sex: Male
  Weight: 98.9 kg

DRUGS (1)
  1. CARFILZOMIB [Suspect]
     Active Substance: CARFILZOMIB
     Indication: PLASMA CELL MYELOMA
     Dosage: 44 MG  OTHER  IV
     Route: 042
     Dates: start: 20140501

REACTIONS (4)
  - Condition aggravated [None]
  - Thrombocytopenia [None]
  - Deep vein thrombosis [None]
  - Neuropathy peripheral [None]

NARRATIVE: CASE EVENT DATE: 20140923
